FAERS Safety Report 25655510 (Version 1)
Quarter: 2025Q3

REPORT INFORMATION
  Report Type: Spontaneous
  Country: US (occurrence: US)
  Receive Date: 20250807
  Receipt Date: 20250807
  Transmission Date: 20251020
  Serious: Yes (Other)
  Sender: MYLAN
  Company Number: US-MYLANLABS-2025M1066257

PATIENT
  Age: 74 Year
  Sex: Male

DRUGS (6)
  1. METHOTREXATE [Suspect]
     Active Substance: METHOTREXATE
     Indication: Connective tissue disease-associated interstitial lung disease
  2. MYCOPHENOLATE MOFETIL [Suspect]
     Active Substance: MYCOPHENOLATE MOFETIL
     Indication: Connective tissue disease-associated interstitial lung disease
  3. ABATACEPT [Suspect]
     Active Substance: ABATACEPT
     Indication: Connective tissue disease-associated interstitial lung disease
  4. ADALIMUMAB [Suspect]
     Active Substance: ADALIMUMAB
     Indication: Connective tissue disease-associated interstitial lung disease
  5. LEFLUNOMIDE [Suspect]
     Active Substance: LEFLUNOMIDE
     Indication: Connective tissue disease-associated interstitial lung disease
  6. SULFASALAZINE [Suspect]
     Active Substance: SULFASALAZINE
     Indication: Connective tissue disease-associated interstitial lung disease

REACTIONS (2)
  - Drug ineffective [Unknown]
  - Off label use [Unknown]
